FAERS Safety Report 4404305-X (Version None)
Quarter: 2004Q3

REPORT INFORMATION
  Report Type: 
  Country: None (occurrence: None)
  Receive Date: 20040721
  Receipt Date: 20040721
  Transmission Date: 20050211
  Serious: Yes (Other)
  Sender: FDA-Public Use
  Company Number: None

PATIENT
  Age: 72 Year
  Sex: Male

DRUGS (7)
  1. PREDNISONE [Suspect]
     Indication: TEMPORAL ARTERITIS
     Dosage: 45 MG X 7 DAY DECREASING DOSE
  2. ALENDRONATE SODIUM [Concomitant]
  3. ATROVENT [Concomitant]
  4. ALBUTEROL [Concomitant]
  5. METOPROLOL [Concomitant]
  6. TRIAMCINOLONE [Concomitant]
  7. GEMFIBROZIL [Concomitant]

REACTIONS (2)
  - HYPERGLYCAEMIA [None]
  - VISION BLURRED [None]
